FAERS Safety Report 26021443 (Version 1)
Quarter: 2025Q4

REPORT INFORMATION
  Report Type: Spontaneous
  Country: US (occurrence: None)
  Receive Date: 20251109
  Receipt Date: 20251109
  Transmission Date: 20260118
  Serious: Yes (Hospitalization)
  Sender: FDA-CTU
  Company Number: None

PATIENT
  Age: 55 Year
  Sex: Female

DRUGS (1)
  1. SIMLANDI [Suspect]
     Active Substance: ADALIMUMAB-RYVK
     Indication: Psoriatic arthropathy
     Dosage: 40 MG EVERY 14 DAYS SUBCUTANEOUS
     Route: 058

REACTIONS (4)
  - Nephrolithiasis [None]
  - Kidney infection [None]
  - Therapy interrupted [None]
  - Stent placement [None]

NARRATIVE: CASE EVENT DATE: 20251027
